FAERS Safety Report 11323398 (Version 3)
Quarter: 2017Q3

REPORT INFORMATION
  Report Type: Spontaneous
  Country: GB (occurrence: GB)
  Receive Date: 20150730
  Receipt Date: 20170727
  Transmission Date: 20171127
  Serious: Yes (Other)
  Sender: FDA-Public Use
  Company Number: GB-CIPLA LTD.-2015GB06152

PATIENT

DRUGS (1)
  1. GEMCITABINE [Suspect]
     Active Substance: GEMCITABINE\GEMCITABINE HYDROCHLORIDE
     Indication: PANCREATIC CARCINOMA
     Dosage: UNK, WEEKLY
     Route: 065

REACTIONS (5)
  - Disease progression [Unknown]
  - Microangiopathic haemolytic anaemia [Unknown]
  - Haemolytic uraemic syndrome [Unknown]
  - Metastases to lung [Unknown]
  - Acute kidney injury [Unknown]
